FAERS Safety Report 13321171 (Version 1)
Quarter: 2017Q1

REPORT INFORMATION
  Report Type: Report from Study
  Country: US (occurrence: AT)
  Receive Date: 20170310
  Receipt Date: 20170310
  Transmission Date: 20170428
  Serious: Yes (Death, Other)
  Sender: FDA-Public Use
  Company Number: US-SA-2017SA039286

PATIENT
  Age: 38 Year
  Sex: Female

DRUGS (5)
  1. THYMOGLOBULINE [Suspect]
     Active Substance: LAPINE T-LYMPHOCYTE IMMUNE GLOBULIN
     Indication: IMMUNOSUPPRESSION
     Dosage: DOSE: 1.5 TO 2 MG/KG FOR 3-5 DAYS
     Route: 041
  2. TACROLIMUS. [Suspect]
     Active Substance: TACROLIMUS
     Indication: IMMUNOSUPPRESSION
     Route: 065
  3. DACLIZUMAB [Concomitant]
     Active Substance: DACLIZUMAB
     Dosage: 2 MG/KG ON DAYS 1 AND 14 POST TRANSPLANT
  4. PREDNISOLONE. [Suspect]
     Active Substance: PREDNISOLONE
     Indication: IMMUNOSUPPRESSION
     Route: 065
  5. AZATHIOPRINE. [Suspect]
     Active Substance: AZATHIOPRINE
     Indication: IMMUNOSUPPRESSION
     Route: 065

REACTIONS (6)
  - Nocardiosis [Fatal]
  - Infection [Unknown]
  - Urinary tract infection [Unknown]
  - Staphylococcal sepsis [Unknown]
  - Cytomegalovirus infection [Fatal]
  - Multiple organ dysfunction syndrome [Fatal]
